FAERS Safety Report 6153356-6 (Version None)
Quarter: 2009Q2

REPORT INFORMATION
  Report Type: 
  Country: None (occurrence: None)
  Receive Date: 20090409
  Receipt Date: 20090409
  Transmission Date: 20091009
  Serious: Yes (Other)
  Sender: FDA-Public Use
  Company Number: None

PATIENT
  Sex: Male

DRUGS (1)
  1. RISPERIDONE [Suspect]
     Dosage: 0.5MG ONE AM AND TWO HS PO
     Route: 048
     Dates: start: 20080801, end: 20081201

REACTIONS (5)
  - AGGRESSION [None]
  - AUTISM [None]
  - CONDITION AGGRAVATED [None]
  - PRODUCT SUBSTITUTION ISSUE [None]
  - REGRESSIVE BEHAVIOUR [None]
